FAERS Safety Report 12552763 (Version 1)
Quarter: 2016Q3

REPORT INFORMATION
  Report Type: Spontaneous
  Country: BR (occurrence: BR)
  Receive Date: 20160713
  Receipt Date: 20160713
  Transmission Date: 20161109
  Serious: Yes (Hospitalization)
  Sender: FDA-Public Use
  Company Number: BR-PFIZER INC-2016321959

PATIENT
  Age: 55 Year
  Sex: Female

DRUGS (2)
  1. DOXYCYCLINE. [Suspect]
     Active Substance: DOXYCYCLINE
     Indication: SINUSITIS
     Dosage: 100 MG, 2X/DAY
     Route: 048
     Dates: start: 20160621, end: 20160629
  2. LEVOFLOXACIN. [Suspect]
     Active Substance: LEVOFLOXACIN
     Indication: SINUSITIS
     Dosage: 500 MG, UNK
     Dates: start: 2016, end: 2016

REACTIONS (11)
  - Headache [Unknown]
  - Insomnia [Not Recovered/Not Resolved]
  - Back pain [Not Recovered/Not Resolved]
  - Blood pressure increased [Unknown]
  - Drug ineffective [Recovered/Resolved]
  - Gastric disorder [Unknown]
  - Abdominal pain [Recovered/Resolved]
  - Spinal pain [Unknown]
  - Vomiting [Unknown]
  - Cough decreased [Not Recovered/Not Resolved]
  - Sluggishness [Unknown]

NARRATIVE: CASE EVENT DATE: 20160621
